FAERS Safety Report 8410360-2 (Version None)
Quarter: 2012Q2

REPORT INFORMATION
  Report Type: 
  Country: None (occurrence: None)
  Receive Date: 20120605
  Receipt Date: 20120529
  Transmission Date: 20120825
  Serious: Yes (Other)
  Sender: FDA-Public Use
  Company Number: ES-UCBSA-058315

PATIENT
  Sex: Male

DRUGS (1)
  1. CIMZIA [Suspect]
     Route: 058

REACTIONS (3)
  - ABDOMINAL PAIN [None]
  - PALLOR [None]
  - PARALYSIS [None]
